FAERS Safety Report 12084772 (Version 1)
Quarter: 2016Q1

REPORT INFORMATION
  Report Type: Spontaneous
  Country: FR (occurrence: FR)
  Receive Date: 20160217
  Receipt Date: 20160217
  Transmission Date: 20160526
  Serious: Yes (Death)
  Sender: FDA-Public Use
  Company Number: FR-TEVA-634733ISR

PATIENT
  Sex: Male

DRUGS (1)
  1. METFORMINE TEVA 850 MG [Suspect]
     Active Substance: METFORMIN HYDROCHLORIDE
     Indication: DIABETES MELLITUS
     Dosage: 1 DOSAGE FORMS DAILY;
     Route: 048
     Dates: start: 2013, end: 20150415

REACTIONS (1)
  - Hepatic cancer [Fatal]

NARRATIVE: CASE EVENT DATE: 2015
